FAERS Safety Report 6636899-8 (Version None)
Quarter: 2010Q1

REPORT INFORMATION
  Report Type: 
  Country: None (occurrence: None)
  Receive Date: 20100316
  Receipt Date: 20100308
  Transmission Date: 20100710
  Serious: Yes (Hospitalization)
  Sender: FDA-Public Use
  Company Number: PHHY2010FR14016

PATIENT
  Age: 70 Year
  Sex: Female

DRUGS (1)
  1. RASILEZ [Suspect]
     Dosage: 300 MG, QD
     Dates: start: 20100114, end: 20100226

REACTIONS (6)
  - ANAEMIA [None]
  - ASTHENIA [None]
  - HAEMOGLOBIN DECREASED [None]
  - PANCYTOPENIA [None]
  - PLATELET COUNT DECREASED [None]
  - WHITE BLOOD CELL COUNT DECREASED [None]
